FAERS Safety Report 15483654 (Version 1)
Quarter: 2018Q4

REPORT INFORMATION
  Report Type: Spontaneous
  Country: ES (occurrence: ES)
  Receive Date: 20181010
  Receipt Date: 20181010
  Transmission Date: 20190205
  Serious: Yes (Life-Threatening, Hospitalization)
  Sender: FDA-Public Use
  Company Number: ES-CELGENEUS-ESP-20181000643

PATIENT
  Age: 83 Year
  Sex: Male

DRUGS (5)
  1. DANAZOL. [Concomitant]
     Active Substance: DANAZOL
     Route: 065
     Dates: start: 20180528
  2. REVOLADE [Concomitant]
     Active Substance: ELTROMBOPAG
     Indication: CHRONIC MYELOMONOCYTIC LEUKAEMIA
     Route: 065
     Dates: start: 20180321
  3. DANAZOL. [Concomitant]
     Active Substance: DANAZOL
     Indication: CHRONIC MYELOMONOCYTIC LEUKAEMIA
     Route: 065
     Dates: start: 20180221, end: 20180426
  4. AZACITIDINE. [Suspect]
     Active Substance: AZACITIDINE
     Indication: CHRONIC MYELOID LEUKAEMIA
     Route: 065
     Dates: start: 20100924, end: 20180723
  5. MERCAPTOPURINE. [Concomitant]
     Active Substance: MERCAPTOPURINE
     Indication: CHRONIC MYELOMONOCYTIC LEUKAEMIA
     Route: 065
     Dates: start: 20180423, end: 20180521

REACTIONS (1)
  - Congestive cardiomyopathy [Recovered/Resolved with Sequelae]

NARRATIVE: CASE EVENT DATE: 201806
